FAERS Safety Report 19589318 (Version 4)
Quarter: 2021Q3

REPORT INFORMATION
  Report Type: Report from Study
  Country: MX (occurrence: MX)
  Receive Date: 20210721
  Receipt Date: 20210820
  Transmission Date: 20211014
  Serious: Yes (Other)
  Sender: FDA-Public Use
  Company Number: NVSC2021MX106281

PATIENT
  Age: 56 Year
  Sex: Female
  Weight: 72 kg

DRUGS (3)
  1. FEMARA [Suspect]
     Active Substance: LETROZOLE
     Dosage: 1 DF, QD (2.5 MG)
     Route: 048
     Dates: start: 202006
  2. FEMARA [Suspect]
     Active Substance: LETROZOLE
     Dosage: 1 DF, QD (2.5 MG)
     Route: 048
     Dates: start: 201907
  3. FEMARA [Suspect]
     Active Substance: LETROZOLE
     Indication: BREAST CANCER
     Dosage: 1 DF, QD (2.5 MG)
     Route: 048
     Dates: start: 201907

REACTIONS (9)
  - Arteriosclerosis [Not Recovered/Not Resolved]
  - Hypertension [Unknown]
  - Diabetes mellitus [Not Recovered/Not Resolved]
  - Arrhythmia [Unknown]
  - Blood cholesterol increased [Not Recovered/Not Resolved]
  - Tachycardia [Recovered/Resolved]
  - Hepatic steatosis [Not Recovered/Not Resolved]
  - Tachycardia [Not Recovered/Not Resolved]
  - Thyroiditis [Recovered/Resolved]

NARRATIVE: CASE EVENT DATE: 202012
